FAERS Safety Report 11381612 (Version 2)
Quarter: 2015Q3

REPORT INFORMATION
  Report Type: Spontaneous
  Country: AU (occurrence: AU)
  Receive Date: 20150814
  Receipt Date: 20150902
  Transmission Date: 20151125
  Serious: Yes (Other)
  Sender: FDA-Public Use
  Company Number: AU-RB PHARMACEUTICALS LIMITED-RB-082017-2015

PATIENT
  Age: 39 Year
  Sex: Male

DRUGS (1)
  1. BUPRENORPHINE/NALOXONE [Suspect]
     Active Substance: BUPRENORPHINE\NALOXONE
     Indication: PRODUCT USED FOR UNKNOWN INDICATION
     Dosage: UNK, INJECTING FREQUENTLY 2-5 TIMES PER DAY
     Route: 051

REACTIONS (3)
  - Intentional product use issue [Unknown]
  - Cardiovascular symptom [Recovered/Resolved]
  - Intentional product misuse [Unknown]
